FAERS Safety Report 21185077 (Version 3)
Quarter: 2022Q4

REPORT INFORMATION
  Report Type: Report from Study
  Country: FR (occurrence: None)
  Receive Date: 20220808
  Receipt Date: 20221108
  Transmission Date: 20230112
  Serious: Yes (Death, Hospitalization)
  Sender: FDA-Public Use
  Company Number: 2022A277139

PATIENT
  Age: 750 Month
  Sex: Male
  Weight: 90 kg

DRUGS (1)
  1. EVUSHELD [Suspect]
     Active Substance: CILGAVIMAB\TIXAGEVIMAB
     Indication: COVID-19 prophylaxis
     Dosage: 150 MG/150 MG, ONCE/SINGLE ADMINISTRATION ONCE/SINGLE ADMINISTRATION
     Route: 030
     Dates: start: 20220111, end: 20220111

REACTIONS (2)
  - COVID-19 [Unknown]
  - Haemolytic anaemia [Fatal]

NARRATIVE: CASE EVENT DATE: 20220611
